FAERS Safety Report 6138827-0 (Version None)
Quarter: 2009Q1

REPORT INFORMATION
  Report Type: 
  Country: None (occurrence: None)
  Receive Date: 20090331
  Receipt Date: 20090324
  Transmission Date: 20090719
  Serious: Yes (Death, Hospitalization, Other)
  Sender: FDA-Public Use
  Company Number: US-ROXANE LABORATORIES, INC.-2009-RO-00282RO

PATIENT
  Age: 56 Year
  Sex: Male

DRUGS (26)
  1. MORPHINE [Suspect]
     Indication: NON-CARDIAC CHEST PAIN
     Dosage: 360MG
  2. MORPHINE [Suspect]
     Indication: BREAKTHROUGH PAIN
  3. MORPHINE [Suspect]
     Indication: PAIN
  4. MORPHINE [Suspect]
  5. MORPHINE [Suspect]
  6. MORPHINE [Suspect]
     Dosage: 690MG
  7. MORPHINE [Suspect]
     Dosage: 960MG
  8. MORPHINE [Suspect]
     Dosage: 1600MG
  9. MORPHINE [Suspect]
     Route: 048
  10. DEXAMETHASONE TAB [Suspect]
     Indication: SQUAMOUS CELL CARCINOMA
     Route: 042
  11. DEXAMETHASONE TAB [Suspect]
     Dosage: 16MG
  12. HYDROMORPHONE HCL [Suspect]
     Indication: PAIN
  13. HYDROMORPHONE HCL [Suspect]
  14. HYDROMORPHONE HCL [Suspect]
  15. HYDROMORPHONE HCL [Suspect]
  16. LORAZEPAM [Suspect]
     Dosage: .75MG
  17. LIDOCAINE [Suspect]
  18. METHADONE [Suspect]
     Indication: PAIN
     Dosage: 20MG
  19. OXYCODONE HCL [Suspect]
     Indication: PAIN
     Dosage: 280MG
  20. OXYCODONE HCL [Suspect]
  21. OXYCODONE HCL [Suspect]
     Dosage: 360MG
  22. OXYCODONE HCL [Suspect]
  23. OXYCODONE HCL [Suspect]
     Dosage: 120MG
  24. IBUPROFEN [Suspect]
     Dosage: 2400MG
  25. IBUPROFEN [Suspect]
     Dosage: 1200MG
  26. FENTANYL-25 [Suspect]
     Indication: PAIN

REACTIONS (11)
  - ASTHENIA [None]
  - DEATH [None]
  - DRUG INEFFECTIVE [None]
  - FATIGUE [None]
  - HYPERAESTHESIA [None]
  - LUNG SQUAMOUS CELL CARCINOMA RECURRENT [None]
  - METASTASES TO SPINE [None]
  - NAUSEA [None]
  - SEDATION [None]
  - SOMNOLENCE [None]
  - VOMITING [None]
